FAERS Safety Report 17992603 (Version 1)
Quarter: 2020Q3

REPORT INFORMATION
  Report Type: Spontaneous
  Country: GB (occurrence: GB)
  Receive Date: 20200707
  Receipt Date: 20200707
  Transmission Date: 20201103
  Serious: Yes (Other)
  Sender: FDA-Public Use
  Company Number: NVSC2020GB188881

PATIENT
  Age: 68 Year
  Sex: Female

DRUGS (12)
  1. FENTANYL. [Suspect]
     Active Substance: FENTANYL
     Indication: AORTIC ANEURYSM REPAIR
     Dosage: UNK
     Route: 065
  2. ROCURONIUM [Suspect]
     Active Substance: ROCURONIUM BROMIDE
     Indication: AORTIC ANEURYSM REPAIR
     Dosage: SKIN TEST
     Route: 065
  3. CISATRACURIUM. [Suspect]
     Active Substance: CISATRACURIUM
     Indication: SKIN TEST
     Dosage: UNK
     Route: 065
  4. METRONIDAZOLE. [Suspect]
     Active Substance: METRONIDAZOLE
     Indication: AORTIC ANEURYSM REPAIR
     Dosage: UNK
     Route: 065
  5. GENTAMICIN. [Suspect]
     Active Substance: GENTAMICIN
     Indication: SKIN TEST
     Dosage: SURGERY
     Route: 065
  6. PROPOFOL. [Suspect]
     Active Substance: PROPOFOL
     Indication: AORTIC ANEURYSM REPAIR
     Dosage: UNK (SURGERY)
     Route: 065
  7. POVIDONE?IODINE. [Suspect]
     Active Substance: POVIDONE-IODINE
     Indication: AORTIC ANEURYSM REPAIR
     Dosage: SURGERY
     Route: 061
  8. POVIDONE?IODINE. [Suspect]
     Active Substance: POVIDONE-IODINE
     Indication: SKIN TEST
     Dosage: UNK
     Route: 065
  9. GENTAMICIN. [Suspect]
     Active Substance: GENTAMICIN
     Indication: AORTIC ANEURYSM REPAIR
     Dosage: SKIN TEST
     Route: 065
  10. ROCURONIUM [Suspect]
     Active Substance: ROCURONIUM BROMIDE
     Indication: SKIN TEST
     Dosage: SURGERY
     Route: 065
  11. ATRACURIUM [Suspect]
     Active Substance: ATRACURIUM
     Indication: SKIN TEST
     Dosage: UNK
     Route: 065
  12. CHLORHEXIDINE [Suspect]
     Active Substance: CHLORHEXIDINE
     Indication: AORTIC ANEURYSM REPAIR
     Dosage: UNK
     Route: 061

REACTIONS (2)
  - Skin test positive [Unknown]
  - Anaphylactic reaction [Recovered/Resolved]
